FAERS Safety Report 7477807-X (Version None)
Quarter: 2011Q2

REPORT INFORMATION
  Report Type: 
  Country: None (occurrence: None)
  Receive Date: 20110511
  Receipt Date: 20110511
  Transmission Date: 20111010
  Serious: Yes (Death)
  Sender: FDA-Public Use
  Company Number: None

PATIENT
  Age: 56 Year
  Sex: Male

DRUGS (12)
  1. CITALOPRAM HYDROBROMIDE [Concomitant]
  2. RISPERIDONE [Concomitant]
  3. HYOSCYAMINE [Concomitant]
  4. FOLIC ACID [Concomitant]
  5. LACTULOSE [Concomitant]
  6. GABAPENTIN [Concomitant]
  7. REVLIMID [Suspect]
     Indication: MULTIPLE MYELOMA
     Dosage: REVLIMID 25 MG DAILY X21D/28D ORALLY
     Route: 048
     Dates: start: 20090901, end: 20091201
  8. ACYCLOVIR [Concomitant]
  9. BACLOFEN [Concomitant]
  10. NYSTATIN [Concomitant]
  11. PROCRIT [Concomitant]
  12. SIMVASTATIN [Concomitant]

REACTIONS (6)
  - COUGH [None]
  - VOMITING [None]
  - PYREXIA [None]
  - DISEASE PROGRESSION [None]
  - DYSPNOEA [None]
  - DEEP VEIN THROMBOSIS [None]
